FAERS Safety Report 9986371 (Version 1)
Quarter: 2014Q1

REPORT INFORMATION
  Report Type: Report from Study
  Country: US (occurrence: US)
  Receive Date: 20140307
  Receipt Date: 20140307
  Transmission Date: 20141002
  Serious: No
  Sender: FDA-Public Use
  Company Number: US-ABBVIE-13P-163-1090363-00

PATIENT
  Age: 56 Year
  Sex: Female

DRUGS (2)
  1. HUMIRA [Suspect]
     Indication: PSORIATIC ARTHROPATHY
     Dates: start: 20121119
  2. LEXAPRO [Concomitant]
     Indication: NERVOUS SYSTEM DISORDER
     Dosage: 10 MG EVERY DAY

REACTIONS (2)
  - Arthralgia [Recovering/Resolving]
  - Injection site bruising [Recovering/Resolving]
